FAERS Safety Report 8169232-3 (Version None)
Quarter: 2012Q1

REPORT INFORMATION
  Report Type: 
  Country: None (occurrence: None)
  Receive Date: 20120227
  Receipt Date: 20120217
  Transmission Date: 20120608
  Serious: Yes (Hospitalization, Disabling, Other)
  Sender: FDA-Public Use
  Company Number: US-ASTRAZENECA-2012SE11589

PATIENT
  Age: 86 Year
  Sex: Male
  Weight: 62.1 kg

DRUGS (5)
  1. ZOLADEX [Suspect]
     Indication: PROSTATE CANCER
     Route: 058
     Dates: start: 20110401
  2. ZINC OXIDE [Concomitant]
  3. ACETAMINOPHEN [Concomitant]
     Indication: DIARRHOEA
  4. BUMETANIDE [Concomitant]
     Indication: OEDEMA
  5. WARFARIN SODIUM [Concomitant]

REACTIONS (9)
  - OEDEMA [None]
  - DYSPHAGIA [None]
  - PULMONARY OEDEMA [None]
  - DECUBITUS ULCER [None]
  - AGEUSIA [None]
  - BACK PAIN [None]
  - IMPAIRED HEALING [None]
  - DIARRHOEA [None]
  - DECREASED APPETITE [None]
